FAERS Safety Report 25124530 (Version 1)
Quarter: 2025Q1

REPORT INFORMATION
  Report Type: Spontaneous
  Country: CN (occurrence: CN)
  Receive Date: 20250326
  Receipt Date: 20250326
  Transmission Date: 20250409
  Serious: Yes (Other)
  Sender: EXELA PHARMA SCIENCES
  Company Number: CN-EXELAPHARMA-2025EXLA00025

PATIENT
  Age: 67 Year
  Sex: Female

DRUGS (5)
  1. DILTIAZEM HYDROCHLORIDE [Suspect]
     Active Substance: DILTIAZEM HYDROCHLORIDE
     Indication: Supraventricular tachycardia
  2. METHOXYPHENAMINE HYDROCHLORIDE [Suspect]
     Active Substance: METHOXYPHENAMINE HYDROCHLORIDE
     Indication: Cough
     Dates: start: 20240217
  3. NOSCAPINE [Suspect]
     Active Substance: NOSCAPINE
     Indication: Cough
     Dates: start: 20240217
  4. AMINOPHYLLINE [Suspect]
     Active Substance: AMINOPHYLLINE
     Indication: Cough
     Dates: start: 20240217
  5. CHLORPHENIRAMINE MALEATE [Suspect]
     Active Substance: CHLORPHENIRAMINE MALEATE
     Indication: Cough
     Dates: start: 20240217

REACTIONS (4)
  - Angina pectoris [Recovered/Resolved]
  - Tachycardia [Recovered/Resolved]
  - Drug interaction [Recovered/Resolved]
  - Chest pain [Recovered/Resolved]

NARRATIVE: CASE EVENT DATE: 20240217
